FAERS Safety Report 24844612 (Version 1)
Quarter: 2025Q1

REPORT INFORMATION
  Report Type: Other
  Country: CN (occurrence: CN)
  Receive Date: 20250115
  Receipt Date: 20250115
  Transmission Date: 20250409
  Serious: Yes (Hospitalization, Other)
  Sender: CREEKWOOD PHARMACEUTICALS LLC
  Company Number: CN-Creekwood Pharmaceuticals LLC-2169064

PATIENT
  Age: 12 Year
  Sex: Female

DRUGS (8)
  1. HYDROXYCHLOROQUINE SULFATE [Suspect]
     Active Substance: HYDROXYCHLOROQUINE SULFATE
     Indication: Systemic lupus erythematosus
  2. CYCLOPHOSPHAMIDE [Suspect]
     Active Substance: CYCLOPHOSPHAMIDE
  3. GLYCERIN [Concomitant]
     Active Substance: GLYCERIN
  4. FRUCTOSE [Concomitant]
     Active Substance: FRUCTOSE
  5. MANNITOL [Concomitant]
     Active Substance: MANNITOL
  6. TACROLIMUS [Suspect]
     Active Substance: TACROLIMUS
  7. PREDNISONE [Suspect]
     Active Substance: PREDNISONE
  8. METHYLPREDNISOLONE [Suspect]
     Active Substance: METHYLPREDNISOLONE

REACTIONS (1)
  - Aspergillus infection [Recovered/Resolved]
